FAERS Safety Report 5801537-0 (Version None)
Quarter: 2008Q3

REPORT INFORMATION
  Report Type: 
  Country: None (occurrence: None)
  Receive Date: 20080703
  Receipt Date: 20080703
  Transmission Date: 20090109
  Serious: Yes (Hospitalization)
  Sender: FDA-Public Use
  Company Number: None

PATIENT
  Sex: Male

DRUGS (2)
  1. PEGASYS [Suspect]
     Indication: HEPATITIS C
     Dosage: 180 MCG/0.5ML WEEKLY SQ
     Route: 058
  2. RIBAVIRIN [Suspect]
     Dosage: 200 MG 3 AM AND 3 PM PO
     Route: 048

REACTIONS (4)
  - DYSPNOEA [None]
  - RASH [None]
  - RESPIRATORY ARREST [None]
  - URTICARIA [None]
